FAERS Safety Report 6603757-4 (Version None)
Quarter: 2010Q1

REPORT INFORMATION
  Report Type: 
  Country: None (occurrence: None)
  Receive Date: 20100226
  Receipt Date: 20090120
  Transmission Date: 20100710
  Serious: No
  Sender: FDA-Public Use
  Company Number: A0764319A

PATIENT
  Sex: Female

DRUGS (3)
  1. LAMICTAL CD [Suspect]
     Indication: BIPOLAR DISORDER
     Dosage: 50MG TWICE PER DAY
     Route: 048
     Dates: start: 20030901, end: 20080901
  2. LAMOTRIGINE [Suspect]
     Indication: BIPOLAR DISORDER
     Dosage: 50MG TWICE PER DAY
     Route: 048
     Dates: start: 20080901
  3. PAROXETINE HCL [Concomitant]

REACTIONS (2)
  - HANGOVER [None]
  - LETHARGY [None]
